FAERS Safety Report 12985721 (Version 1)
Quarter: 2016Q4

REPORT INFORMATION
  Report Type: Spontaneous
  Country: PT (occurrence: PT)
  Receive Date: 20161130
  Receipt Date: 20161130
  Transmission Date: 20170207
  Serious: Yes (Other)
  Sender: FDA-Public Use
  Company Number: PT-APOTEX-2016AP015099

PATIENT
  Age: 74 Year
  Sex: Female

DRUGS (1)
  1. ATORVASTATINA APOTEX COMPRIMIDOS RECUBIERTOS CON PELICULA [Suspect]
     Active Substance: ATORVASTATIN
     Indication: PRODUCT USED FOR UNKNOWN INDICATION
     Dosage: UNK
     Route: 065

REACTIONS (6)
  - Thrombosis [None]
  - Diarrhoea haemorrhagic [None]
  - Lupus-like syndrome [Unknown]
  - Ascites [None]
  - Pleural effusion [None]
  - Raynaud^s phenomenon [None]
